FAERS Safety Report 21441401 (Version 24)
Quarter: 2023Q1

REPORT INFORMATION
  Report Type: Report from Study
  Country: CL (occurrence: None)
  Receive Date: 20221011
  Receipt Date: 20230130
  Transmission Date: 20230417
  Serious: Yes (Death, Hospitalization)
  Sender: FDA-Public Use
  Company Number: CL-Eisai Medical Research-EC-2022-125421

PATIENT
  Age: 67 Year
  Sex: Male
  Weight: 88 kg

DRUGS (7)
  1. LENVATINIB [Suspect]
     Active Substance: LENVATINIB
     Indication: Hepatocellular carcinoma
     Route: 048
     Dates: start: 20220912, end: 20221003
  2. PEMBROLIZUMAB [Suspect]
     Active Substance: PEMBROLIZUMAB
     Indication: Hepatocellular carcinoma
     Route: 041
     Dates: start: 20220912, end: 20220912
  3. BELZUTIFAN [Suspect]
     Active Substance: BELZUTIFAN
     Indication: Hepatocellular carcinoma
     Route: 048
     Dates: start: 20220912, end: 20221003
  4. METFORMIN [Concomitant]
     Active Substance: METFORMIN HYDROCHLORIDE
     Dates: start: 201306
  5. CARVEDILOL [Concomitant]
     Active Substance: CARVEDILOL
     Dates: start: 202106
  6. ZOPICLONE [Concomitant]
     Active Substance: ZOPICLONE
     Dates: start: 202203
  7. CEFADROXIL [Concomitant]
     Active Substance: CEFADROXIL
     Dates: start: 20220310

REACTIONS (4)
  - Jaundice [Recovered/Resolved]
  - Haemorrhoidal haemorrhage [Recovered/Resolved]
  - Myocardial infarction [Fatal]
  - Anaemia [Not Recovered/Not Resolved]

NARRATIVE: CASE EVENT DATE: 20221003
